FAERS Safety Report 9730192 (Version 1)
Quarter: 2013Q4

REPORT INFORMATION
  Report Type: Spontaneous
  Country: US (occurrence: US)
  Receive Date: 20131204
  Receipt Date: 20131204
  Transmission Date: 20140711
  Serious: No
  Sender: FDA-Public Use
  Company Number: US-ENDO PHARMACEUTICALS INC.-APIR20120017

PATIENT
  Sex: Female

DRUGS (2)
  1. ALPRAZOLAM [Suspect]
     Indication: ANXIETY
     Route: 048
     Dates: start: 2012
  2. ALPRAZOLAM [Suspect]
     Route: 048
     Dates: start: 2010, end: 2012

REACTIONS (1)
  - Dry mouth [Not Recovered/Not Resolved]
